FAERS Safety Report 7464443-4 (Version None)
Quarter: 2011Q1

REPORT INFORMATION
  Report Type: 
  Country: None (occurrence: None)
  Receive Date: 20110302
  Receipt Date: 20101110
  Transmission Date: 20110831
  Serious: Yes (Hospitalization)
  Sender: FDA-Public Use
  Company Number: 163-21880-10091532

PATIENT
  Age: 57 Year
  Sex: Female

DRUGS (6)
  1. REVLIMID [Suspect]
     Indication: MULTIPLE MYELOMA
     Dosage: 10 MG, PO, 5 MG, DAILY FOR 14 DAYS, PO
     Route: 048
     Dates: start: 20100915
  2. REVLIMID [Suspect]
     Indication: MULTIPLE MYELOMA
     Dosage: 10 MG, PO, 5 MG, DAILY FOR 14 DAYS, PO
     Route: 048
     Dates: start: 20100601
  3. PROCRIT [Concomitant]
  4. THALOMID [Suspect]
     Indication: MULTIPLE MYELOMA
     Dosage: 100 MG, 1 IN 1 D, PO
     Route: 048
     Dates: start: 20100701
  5. DECADRON [Concomitant]
  6. VELCADE [Concomitant]

REACTIONS (5)
  - RENAL IMPAIRMENT [None]
  - INTERVERTEBRAL DISC PROTRUSION [None]
  - BACK PAIN [None]
  - ARTHRALGIA [None]
  - PLATELET DISORDER [None]
